FAERS Safety Report 10539046 (Version 2)
Quarter: 2014Q4

REPORT INFORMATION
  Report Type: Report from Study
  Country: AR (occurrence: AR)
  Receive Date: 20141023
  Receipt Date: 20141114
  Transmission Date: 20150529
  Serious: Yes (Other)
  Sender: FDA-Public Use
  Company Number: AR-ABBVIE-14P-007-1297805-00

PATIENT
  Age: 84 Year
  Sex: Male

DRUGS (1)
  1. ZEMPLAR [Suspect]
     Active Substance: PARICALCITOL
     Indication: HYPERPARATHYROIDISM SECONDARY
     Route: 048
     Dates: start: 20140825

REACTIONS (2)
  - General physical health deterioration [Recovering/Resolving]
  - Prostate infection [Recovered/Resolved]

NARRATIVE: CASE EVENT DATE: 20141007
